FAERS Safety Report 12459659 (Version 2)
Quarter: 2016Q4

REPORT INFORMATION
  Report Type: Spontaneous
  Country: US (occurrence: US)
  Receive Date: 20160613
  Receipt Date: 20161117
  Transmission Date: 20170207
  Serious: No
  Sender: FDA-Public Use
  Company Number: US-TEVA-667596USA

PATIENT
  Sex: Female
  Weight: 105.78 kg

DRUGS (24)
  1. PERPHENAZINE. [Concomitant]
     Active Substance: PERPHENAZINE
  2. BETA CAROTENE [Concomitant]
  3. ZINC [Concomitant]
     Active Substance: ZINC\ZINC CHLORIDE
  4. CRANBERRY SUPPLEMENT [Concomitant]
  5. HYDROXYZINE PAMOATE. [Concomitant]
     Active Substance: HYDROXYZINE PAMOATE
  6. IRON [Concomitant]
     Active Substance: IRON
  7. CLONAZEPAM. [Concomitant]
     Active Substance: CLONAZEPAM
  8. PROBIOTIC [Concomitant]
     Active Substance: PROBIOTICS NOS
  9. MELATONIN [Concomitant]
     Active Substance: MELATONIN
  10. CALCIUM [Concomitant]
     Active Substance: CALCIUM
  11. METHOCARBAMOL. [Concomitant]
     Active Substance: METHOCARBAMOL
  12. MULTIVITAMIN [Concomitant]
     Active Substance: VITAMINS
  13. VITAMIN E [Concomitant]
     Active Substance: .ALPHA.-TOCOPHEROL
  14. VITAMIN B [Concomitant]
     Active Substance: VITAMIN B
  15. SYNRIBO [Suspect]
     Active Substance: OMACETAXINE MEPESUCCINATE
     Indication: CHRONIC MYELOID LEUKAEMIA
     Dosage: 2.4 MILLIGRAM DAILY; HOME ADMINISTRATION
     Dates: start: 20160517, end: 201607
  16. PROPRANOLOL ER [Concomitant]
  17. PRISTIQ EXTENDED-RELEASE [Concomitant]
     Active Substance: DESVENLAFAXINE SUCCINATE
  18. VITAMIN D3 [Concomitant]
     Active Substance: CHOLECALCIFEROL
  19. VITAMIN B12 [Concomitant]
     Active Substance: CYANOCOBALAMIN
  20. OMEGA 3 FISH OIL [Concomitant]
     Active Substance: FISH OIL\OMEGA-3 FATTY ACIDS
  21. GLUCOSAMINE AND CHONDROITIN [Concomitant]
     Active Substance: CHONDROITIN SULFATE (BOVINE)\GLUCOSAMINE HYDROCHLORIDE
  22. IMIPRAMINE [Concomitant]
     Active Substance: IMIPRAMINE
  23. BIOTIN [Concomitant]
     Active Substance: BIOTIN
  24. VITAMIN C [Concomitant]
     Active Substance: ASCORBIC ACID

REACTIONS (1)
  - Hepatic enzyme increased [Unknown]

NARRATIVE: CASE EVENT DATE: 2016
